FAERS Safety Report 25764105 (Version 1)
Quarter: 2025Q3

REPORT INFORMATION
  Report Type: Spontaneous
  Country: US (occurrence: US)
  Receive Date: 20250905
  Receipt Date: 20250905
  Transmission Date: 20251020
  Serious: Yes (Other)
  Sender: BAXTER
  Company Number: US-BAXTER-2025BAX020494

PATIENT
  Age: 45 Year
  Sex: Female
  Weight: 80.4 kg

DRUGS (4)
  1. SODIUM CHLORIDE [Suspect]
     Active Substance: SODIUM CHLORIDE
     Route: 042
     Dates: start: 20250827, end: 20250827
  2. VITAMINS [Suspect]
     Active Substance: VITAMINS
     Indication: Dehydration
     Route: 042
     Dates: start: 20250827, end: 20250827
  3. FOLIC ACID [Concomitant]
     Active Substance: FOLIC ACID
     Route: 042
     Dates: start: 20250827, end: 20250827
  4. THIAMINE [Concomitant]
     Active Substance: THIAMINE
     Route: 042
     Dates: start: 20250827, end: 20250827

REACTIONS (3)
  - Anaphylactic reaction [Recovering/Resolving]
  - Dyspnoea [Recovering/Resolving]
  - Flushing [Recovering/Resolving]

NARRATIVE: CASE EVENT DATE: 20250827
